FAERS Safety Report 9188397 (Version 1)
Quarter: 2012Q4

REPORT INFORMATION
  Report Type: 
  Country: JP (occurrence: JP)
  Receive Date: 20121205
  Receipt Date: 20121205
  Transmission Date: 20130627
  Serious: Yes (Other)
  Sender: FDA-Public Use
  Company Number: JP-JNJFOC-20121115076

PATIENT
  Age: 79 Year
  Sex: Female

DRUGS (5)
  1. TRAMCET [Suspect]
     Indication: PAIN
     Dosage: 4 doses per day
     Route: 048
     Dates: start: 20121105, end: 20121120
  2. PRIMPERAN [Concomitant]
     Indication: PROPHYLAXIS OF NAUSEA AND VOMITING
     Dosage: 4 per day
     Route: 048
     Dates: start: 20121105, end: 20121120
  3. PRIMPERAN [Concomitant]
     Indication: PROPHYLAXIS OF NAUSEA AND VOMITING
     Dosage: 4 per day
     Route: 048
     Dates: start: 20121105, end: 20121120
  4. CELECOX [Concomitant]
     Indication: INTERVERTEBRAL DISC PROTRUSION
     Dosage: 1 per 1 day
     Route: 048
  5. NEXIUM [Concomitant]
     Indication: PRODUCT USED FOR UNKNOWN INDICATION
     Dosage: 1 per 1 day
     Route: 048

REACTIONS (1)
  - Dysuria [Recovered/Resolved]
